FAERS Safety Report 24012807 (Version 2)
Quarter: 2024Q3

REPORT INFORMATION
  Report Type: Spontaneous
  Country: JP (occurrence: JP)
  Receive Date: 20240626
  Receipt Date: 20240701
  Transmission Date: 20241016
  Serious: Yes (Hospitalization, Other)
  Sender: JOHNSON AND JOHNSON
  Company Number: JP-JNJFOC-20240215545

PATIENT
  Age: 3 Decade
  Sex: Male
  Weight: 60 kg

DRUGS (4)
  1. RILPIVIRINE [Suspect]
     Active Substance: RILPIVIRINE
     Indication: HIV infection
     Dosage: RILPIVIRINE:900MG
     Route: 030
     Dates: start: 202310, end: 2024
  2. VOCABRIA [Suspect]
     Active Substance: CABOTEGRAVIR SODIUM
     Indication: HIV infection
     Dosage: 600MG
     Route: 030
     Dates: start: 202310, end: 2024
  3. EDURANT [Concomitant]
     Active Substance: RILPIVIRINE HYDROCHLORIDE
     Indication: HIV infection
     Dosage: DOSE UNKNOWN
     Route: 048
  4. VOCABRIA [Concomitant]
     Active Substance: CABOTEGRAVIR SODIUM
     Indication: HIV infection
     Dosage: DOSE UNKNOWN
     Route: 048

REACTIONS (3)
  - Appendicitis [Unknown]
  - Substance use [Unknown]
  - Crime [Unknown]

NARRATIVE: CASE EVENT DATE: 20240101
